FAERS Safety Report 18061407 (Version 2)
Quarter: 2020Q3

REPORT INFORMATION
  Report Type: Spontaneous
  Country: JP (occurrence: JP)
  Receive Date: 20200723
  Receipt Date: 20200729
  Transmission Date: 20201103
  Serious: Yes (Hospitalization, Other)
  Sender: FDA-Public Use
  Company Number: JP-SA-2020SA188283

PATIENT

DRUGS (4)
  1. LOCOID [Concomitant]
     Active Substance: HYDROCORTISONE BUTYRATE
     Indication: DERMATITIS ATOPIC
     Dosage: PRESCRIBED ABOUT 50 G PER MONTH
     Route: 061
     Dates: start: 20160710
  2. PROTOPIC [Suspect]
     Active Substance: TACROLIMUS
     Indication: DERMATITIS ATOPIC
     Dosage: PRESCRIBED ABOUT 5 TO 10 G PER MONTH
     Route: 061
     Dates: start: 20160710, end: 20200721
  3. DUPIXENT [Suspect]
     Active Substance: DUPILUMAB
     Indication: DERMATITIS ATOPIC
     Dosage: 300 MG, QOW
     Route: 058
     Dates: start: 20191001, end: 20200707
  4. XYZAL [Concomitant]
     Active Substance: LEVOCETIRIZINE DIHYDROCHLORIDE
     Indication: DERMATITIS ATOPIC
     Dosage: DAILY DOSE: 10 G: 5 G X 2, DIVIDED INTO 1 TO 2 TIMES A DAY
     Route: 065
     Dates: start: 20160710, end: 20200721

REACTIONS (1)
  - Lymphoma [Not Recovered/Not Resolved]

NARRATIVE: CASE EVENT DATE: 202007
